FAERS Safety Report 5106773-7 (Version None)
Quarter: 2006Q3

REPORT INFORMATION
  Report Type: 
  Country: None (occurrence: None)
  Receive Date: 20060731
  Receipt Date: 20051129
  Transmission Date: 20061208
  Serious: Yes (Death, Hospitalization)
  Sender: FDA-Public Use
  Company Number: US-JNJFOC-20050902707

PATIENT
  Age: 60 Year
  Sex: Female

DRUGS (10)
  1. RISPERDAL [Suspect]
     Indication: ABNORMAL BEHAVIOUR
     Dosage: SEE IMAGE
     Route: 048
     Dates: end: 20050101
  2. RISPERDAL [Suspect]
     Indication: AGITATION
     Dosage: SEE IMAGE
     Route: 048
     Dates: end: 20050101
  3. RISPERDAL [Suspect]
     Indication: DEMENTIA ALZHEIMER'S TYPE
     Dosage: SEE IMAGE
     Route: 048
     Dates: end: 20050101
  4. RISPERDAL [Suspect]
     Indication: EMOTIONAL DISORDER
     Dosage: SEE IMAGE
     Route: 048
     Dates: end: 20050101
  5. RISPERDAL [Suspect]
     Indication: ABNORMAL BEHAVIOUR
     Dosage: SEE IMAGE
     Route: 048
     Dates: start: 20050601, end: 20050601
  6. RISPERDAL [Suspect]
     Indication: AGITATION
     Dosage: SEE IMAGE
     Route: 048
     Dates: start: 20050601, end: 20050601
  7. RISPERDAL [Suspect]
     Indication: DEMENTIA ALZHEIMER'S TYPE
     Dosage: SEE IMAGE
     Route: 048
     Dates: start: 20050601, end: 20050601
  8. RISPERDAL [Suspect]
     Indication: EMOTIONAL DISORDER
     Dosage: SEE IMAGE
     Route: 048
     Dates: start: 20050601, end: 20050601
  9. ARICEPT [Concomitant]
  10. MEMANTINE HCL [Concomitant]

REACTIONS (3)
  - AGGRESSION [None]
  - ORTHOSTATIC HYPOTENSION [None]
  - SUDDEN DEATH [None]
